FAERS Safety Report 20721772 (Version 1)
Quarter: 2022Q2

REPORT INFORMATION
  Report Type: Spontaneous
  Country: JP (occurrence: JP)
  Receive Date: 20220418
  Receipt Date: 20220418
  Transmission Date: 20220720
  Serious: No
  Sender: FDA-Public Use
  Company Number: JP-LUPIN PHARMACEUTICALS INC.-2022-05615

PATIENT
  Age: 72 Year
  Sex: Male

DRUGS (1)
  1. MINOCYCLINE [Suspect]
     Active Substance: MINOCYCLINE HYDROCHLORIDE
     Indication: Neurodermatitis
     Dosage: 100 MG, QD
     Route: 065

REACTIONS (2)
  - Tissue discolouration [Unknown]
  - Skin discolouration [Unknown]
